FAERS Safety Report 15564514 (Version 1)
Quarter: 2018Q4

REPORT INFORMATION
  Report Type: Spontaneous
  Country: US (occurrence: US)
  Receive Date: 20181024
  Receipt Date: 20181024
  Transmission Date: 20190205
  Serious: Yes (Other)
  Sender: FDA-Public Use
  Company Number: None

PATIENT
  Age: 37 Year
  Sex: Male
  Weight: 67.59 kg

DRUGS (2)
  1. TENOFOVIR DISOPROXIL FUMARATE 300MG [Suspect]
     Active Substance: TENOFOVIR DISOPROXIL FUMARATE
     Indication: CHRONIC HEPATITIS B
     Route: 048
     Dates: start: 20160801, end: 20180731
  2. VIREAD 300 MG TABS 2017 [Concomitant]

REACTIONS (4)
  - Product substitution issue [None]
  - Fatigue [None]
  - Therapeutic response changed [None]
  - Condition aggravated [None]

NARRATIVE: CASE EVENT DATE: 20180801
